FAERS Safety Report 13637652 (Version 1)
Quarter: 2017Q2

REPORT INFORMATION
  Report Type: Spontaneous
  Country: US (occurrence: US)
  Receive Date: 20170609
  Receipt Date: 20170609
  Transmission Date: 20170830
  Serious: No
  Sender: FDA-Public Use
  Company Number: US-TRIS PHARMA, INC-2017TRISPO00084

PATIENT

DRUGS (4)
  1. GUMMY VITAMINS [Concomitant]
     Indication: PRODUCT USED FOR UNKNOWN INDICATION
     Dosage: UNK
     Route: 065
  2. CHILDRENS ALLEGRA [Concomitant]
     Indication: PRODUCT USED FOR UNKNOWN INDICATION
     Dosage: UNK
     Route: 065
  3. KARBINAL ER [Suspect]
     Active Substance: CARBINOXAMINE MALEATE
     Indication: MULTIPLE ALLERGIES
     Dosage: 2.5 ML, QD (TAKEN ONCE DAILY AT NIGHT)
     Route: 048
     Dates: start: 20170509, end: 20170510
  4. PAZEO [Concomitant]
     Active Substance: OLOPATADINE HYDROCHLORIDE
     Indication: HYPERSENSITIVITY
     Dosage: UNK
     Route: 047

REACTIONS (1)
  - Viral rash [Recovered/Resolved]

NARRATIVE: CASE EVENT DATE: 20170511
